FAERS Safety Report 9482443 (Version 2)
Quarter: 2013Q3

REPORT INFORMATION
  Report Type: Spontaneous
  Country: IT (occurrence: None)
  Receive Date: 20130822
  Receipt Date: 20130905
  Transmission Date: 20140515
  Serious: Yes (Hospitalization)
  Sender: FDA-Public Use
  Company Number: 2013AP007250

PATIENT
  Age: 46 Year
  Sex: Male

DRUGS (1)
  1. CLARITHROMYCIN [Suspect]
     Indication: INFECTION
     Route: 048
     Dates: start: 20130701, end: 20130704

REACTIONS (3)
  - Acute respiratory failure [None]
  - Rash [None]
  - Exfoliative rash [None]
